FAERS Safety Report 6060067-4 (Version None)
Quarter: 2009Q1

REPORT INFORMATION
  Report Type: 
  Country: None (occurrence: None)
  Receive Date: 20090130
  Receipt Date: 20090120
  Transmission Date: 20090719
  Serious: Yes (Hospitalization)
  Sender: FDA-Public Use
  Company Number: FR-ELI_LILLY_AND_COMPANY-FR200901003196

PATIENT
  Age: 56 Year
  Sex: Male

DRUGS (6)
  1. ZYPREXA [Suspect]
     Indication: PSYCHOTIC DISORDER
     Route: 048
  2. HALDOL [Concomitant]
     Indication: PSYCHOTIC DISORDER
  3. SOLIAN [Concomitant]
     Indication: PSYCHOTIC DISORDER
  4. LOXAPAC [Concomitant]
     Indication: PSYCHOTIC DISORDER
  5. VALIUM [Concomitant]
     Indication: PSYCHOTIC DISORDER
  6. LEPTICUR [Concomitant]
     Indication: PSYCHOTIC DISORDER
     Route: 048

REACTIONS (2)
  - FOLATE DEFICIENCY [None]
  - PANCYTOPENIA [None]
